FAERS Safety Report 4870551-4 (Version None)
Quarter: 2005Q4

REPORT INFORMATION
  Report Type: 
  Country: None (occurrence: None)
  Receive Date: 20051228
  Receipt Date: 20051213
  Transmission Date: 20060501
  Serious: Yes (Hospitalization, Other)
  Sender: FDA-Public Use
  Company Number: L05-USA-05632-01

PATIENT
  Age: 44 Year
  Sex: Female

DRUGS (10)
  1. CARBAMAZEPINE [Suspect]
  2. CARBAMAZEPINE [Suspect]
     Dosage: 400 MG BID
  3. CARBAMAZEPINE [Suspect]
     Dosage: 600 MG QHS
  4. CARBAMAZEPINE [Suspect]
     Dosage: 1200 MG ONCE
  5. CARBAMAZEPINE [Suspect]
     Dosage: 200 MG QAM
  6. PAROXETINE HCL [Concomitant]
  7. RISPERIDONE [Concomitant]
  8. BUSPIRONE [Concomitant]
  9. NADOLOL [Concomitant]
  10. HYDROXYZINE [Concomitant]

REACTIONS (15)
  - ANTICONVULSANT DRUG LEVEL INCREASED [None]
  - BLOOD CHLORIDE DECREASED [None]
  - BLOOD OSMOLARITY DECREASED [None]
  - CONFUSIONAL STATE [None]
  - DIZZINESS [None]
  - DRUG DOSE OMISSION [None]
  - GRAND MAL CONVULSION [None]
  - HYPONATRAEMIA [None]
  - INCORRECT DOSE ADMINISTERED [None]
  - LOSS OF CONSCIOUSNESS [None]
  - NYSTAGMUS [None]
  - SENSATION OF BLOOD FLOW [None]
  - TREATMENT NONCOMPLIANCE [None]
  - URINE SODIUM DECREASED [None]
  - VISUAL FIELD DEFECT [None]
